FAERS Safety Report 25505833 (Version 1)
Quarter: 2025Q3

REPORT INFORMATION
  Report Type: Spontaneous
  Country: CN (occurrence: CN)
  Receive Date: 20250702
  Receipt Date: 20250702
  Transmission Date: 20251021
  Serious: Yes (Hospitalization)
  Sender: PFIZER
  Company Number: CN-PFIZER INC-PV202500077728

PATIENT
  Age: 34 Year
  Sex: Male

DRUGS (3)
  1. EPIRUBICIN HYDROCHLORIDE [Suspect]
     Active Substance: EPIRUBICIN HYDROCHLORIDE
     Indication: Gastrointestinal lymphoma
     Dosage: 40 MG, 1X/DAY
     Route: 041
     Dates: start: 20250210, end: 20250211
  2. CYCLOPHOSPHAMIDE [Suspect]
     Active Substance: CYCLOPHOSPHAMIDE
     Indication: Gastrointestinal lymphoma
     Dosage: 1 G, 1X/DAY
     Route: 041
     Dates: start: 20250208, end: 20250208
  3. VINCRISTINE SULFATE [Concomitant]
     Active Substance: VINCRISTINE SULFATE
     Indication: Gastrointestinal lymphoma
     Dosage: 2 MG, 1X/DAY
     Route: 041
     Dates: start: 20250208, end: 20250208

REACTIONS (1)
  - Liver injury [Recovering/Resolving]

NARRATIVE: CASE EVENT DATE: 20250213
